FAERS Safety Report 6010544-7 (Version None)
Quarter: 2008Q4

REPORT INFORMATION
  Report Type: 
  Country: None (occurrence: None)
  Receive Date: 20081218
  Receipt Date: 20081212
  Transmission Date: 20090506
  Serious: Yes (Hospitalization)
  Sender: FDA-Public Use
  Company Number: DE-BAYER-200711190BVD

PATIENT
  Age: 61 Year
  Sex: Female
  Weight: 80 kg

DRUGS (92)
  1. SORAFENIB [Suspect]
     Indication: NON-SMALL CELL LUNG CANCER
     Dosage: TOTAL DAILY DOSE: 800 MG
     Route: 048
     Dates: start: 20070912, end: 20071024
  2. CISPLATIN [Suspect]
     Indication: NON-SMALL CELL LUNG CANCER
     Dosage: TOTAL DAILY DOSE: 138.75 MG
     Route: 042
     Dates: start: 20071004, end: 20071004
  3. CISPLATIN [Suspect]
     Dosage: TOTAL DAILY DOSE: 138.75 MG
     Route: 042
     Dates: start: 20071026, end: 20071026
  4. CISPLATIN [Suspect]
     Dosage: TOTAL DAILY DOSE: 137 MG
     Route: 042
     Dates: start: 20070912, end: 20070912
  5. GEMCITABINE HCL [Suspect]
     Indication: NON-SMALL CELL LUNG CANCER
     Dosage: AS USED: 1250 MG/M2
     Dates: start: 20071004, end: 20071004
  6. GEMCITABINE HCL [Suspect]
     Dosage: AS USED: 1250 MG/M2
     Dates: start: 20070919, end: 20070919
  7. GEMCITABINE HCL [Suspect]
     Dosage: AS USED: 1250 MG/M2
     Dates: start: 20070912, end: 20070912
  8. GEMCITABINE HCL [Suspect]
     Dosage: AS USED: 1250 MG/M2
     Dates: start: 20071011, end: 20071011
  9. GEMCITABINE HCL [Suspect]
     Dosage: AS USED: 1250 MG/M2
     Dates: start: 20071026, end: 20071026
  10. AUGMENTIN '125' [Concomitant]
     Indication: PYREXIA
     Route: 048
     Dates: start: 20071028, end: 20071028
  11. AUGMENTIN '125' [Concomitant]
     Route: 048
     Dates: start: 20071029, end: 20071030
  12. NOVALGIN [Concomitant]
     Indication: ABDOMINAL PAIN
     Route: 042
     Dates: start: 20071030, end: 20071030
  13. NOVALGIN [Concomitant]
     Route: 065
     Dates: start: 20070910, end: 20070911
  14. NOVALGIN [Concomitant]
     Route: 065
     Dates: start: 20071027, end: 20071027
  15. BUSCOPAN [Concomitant]
     Indication: ABDOMINAL PAIN
     Route: 065
     Dates: start: 20071027, end: 20071027
  16. CLEXANE [Concomitant]
     Indication: THROMBOSIS PROPHYLAXIS
     Route: 058
     Dates: start: 20071029
  17. CLEXANE [Concomitant]
     Route: 065
     Dates: start: 20071029, end: 20071030
  18. POTASSIUM CHLORIDE [Concomitant]
     Indication: ELECTROLYTE SUBSTITUTION THERAPY
     Route: 042
     Dates: start: 20071030, end: 20071030
  19. METOCLOPRAMID [Concomitant]
     Indication: DIARRHOEA
     Route: 048
     Dates: start: 20071030, end: 20071030
  20. IRENAT [Concomitant]
     Indication: GOITRE
     Route: 048
     Dates: start: 20071028, end: 20071103
  21. IRENAT [Concomitant]
     Route: 065
     Dates: start: 20071024, end: 20071027
  22. PERENTEROL [Concomitant]
     Indication: DIARRHOEA
     Route: 065
     Dates: start: 20071025
  23. BISOPROLOL FUMARATE [Concomitant]
     Indication: HYPERTENSION
     Route: 065
     Dates: start: 20071003, end: 20071030
  24. PANTOZOL [Concomitant]
     Indication: PROPHYLAXIS AGAINST GASTROINTESTINAL ULCER
     Route: 065
     Dates: start: 20071030, end: 20071030
  25. PANTOZOL [Concomitant]
     Route: 065
     Dates: start: 20071024, end: 20071029
  26. PANTOZOL [Concomitant]
     Route: 065
     Dates: start: 20071006, end: 20071023
  27. PANTOZOL [Concomitant]
     Route: 065
     Dates: start: 20070913, end: 20071002
  28. PANTOZOL [Concomitant]
     Route: 065
     Dates: start: 20071031
  29. CARBIMAZOL [Concomitant]
     Indication: GOITRE
     Route: 065
     Dates: start: 20071024
  30. GABAPENTIN [Concomitant]
     Indication: POLYNEUROPATHY
     Route: 065
     Dates: start: 20071006, end: 20071027
  31. GABAPENTIN [Concomitant]
     Route: 065
     Dates: start: 20071031
  32. NORVASC [Concomitant]
     Indication: HYPERTENSION
     Route: 065
     Dates: start: 20071006, end: 20071030
  33. HYDROCHLOROTHIAZIDE [Concomitant]
     Indication: HYPERTENSION
     Route: 065
     Dates: start: 20070910, end: 20071002
  34. HYDROCHLOROTHIAZIDE [Concomitant]
     Route: 065
     Dates: start: 20071028, end: 20071030
  35. SODIUM CHLORIDE 0.9% [Concomitant]
     Indication: ABDOMINAL PAIN
     Route: 065
     Dates: start: 20071027, end: 20071027
  36. SODIUM CHLORIDE 0.9% [Concomitant]
     Route: 065
     Dates: start: 20071026, end: 20071026
  37. SODIUM CHLORIDE 0.9% [Concomitant]
     Route: 065
     Dates: start: 20071025, end: 20071025
  38. SODIUM CHLORIDE 0.9% [Concomitant]
     Route: 065
     Dates: start: 20071028
  39. SODIUM CHLORIDE 0.9% [Concomitant]
     Route: 065
     Dates: start: 20071028, end: 20071028
  40. SODIUM CHLORIDE 0.9% [Concomitant]
     Route: 065
     Dates: start: 20070912, end: 20070912
  41. SODIUM CHLORIDE 0.9% [Concomitant]
     Route: 065
     Dates: start: 20070913, end: 20070913
  42. SODIUM CHLORIDE 0.9% [Concomitant]
     Route: 065
     Dates: start: 20071003, end: 20071003
  43. SODIUM CHLORIDE 0.9% [Concomitant]
     Route: 065
     Dates: start: 20071005, end: 20071005
  44. SODIUM CHLORIDE 0.9% [Concomitant]
     Route: 065
     Dates: start: 20071004, end: 20071004
  45. POTASSIUM CHLORIDE [Concomitant]
     Indication: HYPOKALAEMIA
     Route: 065
     Dates: start: 20071026, end: 20071028
  46. POTASSIUM CHLORIDE [Concomitant]
     Route: 065
     Dates: start: 20070912, end: 20070912
  47. POTASSIUM CHLORIDE [Concomitant]
     Route: 065
     Dates: start: 20071030, end: 20071030
  48. POTASSIUM CHLORIDE [Concomitant]
     Route: 065
     Dates: start: 20071004, end: 20071004
  49. VOMEX [Concomitant]
     Indication: NAUSEA
     Route: 065
     Dates: start: 20071026, end: 20071026
  50. METOCLOPRAMIDE [Concomitant]
     Indication: PROPHYLAXIS OF NAUSEA AND VOMITING
     Route: 065
     Dates: start: 20071005, end: 20071005
  51. METOCLOPRAMIDE [Concomitant]
     Route: 065
     Dates: start: 20071005, end: 20071030
  52. BISOPROLOL FUMARATE [Concomitant]
     Indication: HYPERTENSION
     Route: 065
     Dates: end: 20071002
  53. TRAMADOL HCL [Concomitant]
     Indication: CHEST PAIN
     Route: 065
     Dates: start: 20070913, end: 20070913
  54. FORTECORTIN [Concomitant]
     Indication: PROPHYLAXIS OF NAUSEA AND VOMITING
     Route: 065
     Dates: start: 20071003, end: 20071003
  55. FORTECORTIN [Concomitant]
     Route: 065
     Dates: start: 20071027, end: 20071027
  56. FORTECORTIN [Concomitant]
     Route: 065
     Dates: start: 20071025, end: 20071025
  57. FORTECORTIN [Concomitant]
     Route: 065
     Dates: start: 20071004, end: 20071004
  58. FORTECORTIN [Concomitant]
     Route: 065
     Dates: start: 20070911, end: 20070911
  59. FORTECORTIN [Concomitant]
     Route: 065
     Dates: start: 20070912, end: 20070912
  60. FORTECORTIN [Concomitant]
     Route: 065
     Dates: start: 20070913, end: 20070913
  61. FORTECORTIN [Concomitant]
     Route: 065
     Dates: start: 20071005, end: 20071005
  62. FORTECORTIN [Concomitant]
     Route: 065
     Dates: start: 20071026, end: 20071026
  63. FORTECORTIN [Concomitant]
     Route: 065
     Dates: start: 20071003, end: 20071005
  64. FORTECORTIN [Concomitant]
     Route: 065
     Dates: start: 20070915, end: 20071002
  65. VERGENTAN [Concomitant]
     Indication: PROPHYLAXIS OF NAUSEA AND VOMITING
     Route: 065
     Dates: start: 20070919, end: 20070919
  66. VERGENTAN [Concomitant]
     Route: 065
     Dates: start: 20071004, end: 20071004
  67. VERGENTAN [Concomitant]
     Route: 065
     Dates: start: 20071011, end: 20071011
  68. VERGENTAN [Concomitant]
     Route: 065
     Dates: start: 20071026, end: 20071026
  69. VERGENTAN [Concomitant]
     Route: 065
     Dates: start: 20070912, end: 20070912
  70. ZOFRAN [Concomitant]
     Indication: PROPHYLAXIS OF NAUSEA AND VOMITING
     Route: 065
     Dates: start: 20071026, end: 20071027
  71. ZOFRAN [Concomitant]
     Route: 065
     Dates: start: 20071004, end: 20071004
  72. ZOFRAN [Concomitant]
     Route: 065
     Dates: start: 20070912, end: 20070912
  73. EMEND [Concomitant]
     Indication: PROPHYLAXIS OF NAUSEA AND VOMITING
     Route: 065
     Dates: start: 20071027, end: 20071027
  74. EMEND [Concomitant]
     Route: 065
     Dates: start: 20071026, end: 20071026
  75. EMEND [Concomitant]
     Route: 065
     Dates: start: 20070912, end: 20070912
  76. EMEND [Concomitant]
     Route: 065
     Dates: start: 20071004, end: 20071004
  77. EMEND [Concomitant]
     Route: 065
     Dates: start: 20070913, end: 20070914
  78. EMEND [Concomitant]
     Route: 065
     Dates: start: 20071005, end: 20071005
  79. LASIX [Concomitant]
     Indication: PROPHYLAXIS OF NAUSEA AND VOMITING
     Route: 065
     Dates: start: 20071004, end: 20071005
  80. LASIX [Concomitant]
     Route: 065
     Dates: start: 20070912, end: 20070912
  81. LASIX [Concomitant]
     Route: 065
     Dates: start: 20071026, end: 20071027
  82. INEGY [Concomitant]
     Indication: HYPERCHOLESTEROLAEMIA
     Dosage: UNIT DOSE: 10 MG
     Route: 065
     Dates: end: 20071030
  83. CONCOR PLUS [Concomitant]
     Indication: HYPERTENSION
     Route: 065
     Dates: start: 20071024, end: 20071027
  84. BISOPROLOL FUMARATE [Concomitant]
     Indication: HYPERTENSION
     Route: 065
     Dates: start: 20071031
  85. BISOPROLOL COMP [Concomitant]
     Indication: HYPERTENSION
     Route: 065
     Dates: start: 20071006, end: 20071023
  86. CALCIUMACETAT [Concomitant]
     Indication: CALCIUM DEFICIENCY
     Route: 065
     Dates: start: 20071031
  87. METAMIZOL NATRIUM [Concomitant]
     Indication: CHEST PAIN
     Route: 065
     Dates: start: 20071031
  88. NADROPARIN CALCIUM [Concomitant]
     Indication: THROMBOSIS PROPHYLAXIS
     Route: 065
     Dates: start: 20071101
  89. LAXOBERAL [Concomitant]
     Indication: CONSTIPATION
     Route: 065
     Dates: start: 20070913, end: 20070913
  90. OXYGEN [Concomitant]
     Indication: PROPHYLAXIS
     Route: 055
     Dates: start: 20071028, end: 20071028
  91. MAGNESIUM SULFATE [Concomitant]
     Indication: MYALGIA
     Route: 065
     Dates: start: 20071001, end: 20071001
  92. KALINOR RETARD [Concomitant]
     Indication: HYPOKALAEMIA
     Route: 065
     Dates: start: 20071028, end: 20071030

REACTIONS (6)
  - ABDOMINAL PAIN [None]
  - FLUID RETENTION [None]
  - MESENTERIC ARTERY THROMBOSIS [None]
  - POST PROCEDURAL HAEMORRHAGE [None]
  - RENAL INFARCT [None]
  - WOUND INFECTION [None]
